FAERS Safety Report 9459925 (Version 3)
Quarter: 2013Q3

REPORT INFORMATION
  Report Type: Spontaneous
  Country: BR (occurrence: BR)
  Receive Date: 20130815
  Receipt Date: 20130824
  Transmission Date: 20140515
  Serious: Yes (Other)
  Sender: FDA-Public Use
  Company Number: BR-ROCHE-1260633

PATIENT
  Sex: Female
  Weight: 64 kg

DRUGS (6)
  1. LUCENTIS [Suspect]
     Indication: AGE-RELATED MACULAR DEGENERATION
     Route: 050
     Dates: start: 2009
  2. LUCENTIS [Suspect]
     Route: 050
     Dates: start: 201303
  3. VISUDYNE [Suspect]
     Indication: AGE-RELATED MACULAR DEGENERATION
     Dosage: IN RIGHT EYE
     Route: 065
     Dates: start: 20130424
  4. VISUDYNE [Suspect]
     Route: 065
     Dates: start: 20130417
  5. VISUDYNE [Suspect]
     Dosage: IN LEFT EYE
     Route: 065
     Dates: start: 20130730
  6. LOSARTAN [Concomitant]
     Indication: HYPERTENSION
     Route: 065

REACTIONS (14)
  - Neck pain [Recovered/Resolved]
  - Cholelithiasis [Recovered/Resolved]
  - Gastrointestinal tract adenoma [Recovered/Resolved]
  - Abdominal pain [Unknown]
  - Muscle spasms [Recovered/Resolved]
  - Expired drug administered [Unknown]
  - General physical health deterioration [Recovered/Resolved]
  - Eye pain [Not Recovered/Not Resolved]
  - Skin exfoliation [Not Recovered/Not Resolved]
  - Mental disorder [Recovered/Resolved]
  - Vision blurred [Unknown]
  - Application site pain [Recovered/Resolved]
  - Visual acuity reduced [Unknown]
  - Application site pain [Unknown]
